FAERS Safety Report 14351346 (Version 1)
Quarter: 2018Q1

REPORT INFORMATION
  Report Type: Spontaneous
  Country: US (occurrence: US)
  Receive Date: 20180104
  Receipt Date: 20180104
  Transmission Date: 20180509
  Serious: No
  Sender: FDA-Public Use
  Company Number: US-PFIZER INC-2017553359

PATIENT
  Age: 69 Year
  Sex: Female

DRUGS (3)
  1. PROCARDIA [Suspect]
     Active Substance: NIFEDIPINE
     Dosage: UNK
  2. KEFZOL [Suspect]
     Active Substance: CEFAZOLIN SODIUM
     Dosage: UNK
  3. BACITRACIN. [Suspect]
     Active Substance: BACITRACIN
     Dosage: UNK

REACTIONS (1)
  - Drug hypersensitivity [Unknown]
